FAERS Safety Report 14068151 (Version 2)
Quarter: 2017Q4

REPORT INFORMATION
  Report Type: Report from Study
  Country: CA (occurrence: CA)
  Receive Date: 20171010
  Receipt Date: 20171214
  Transmission Date: 20180321
  Serious: Yes (Death, Hospitalization, Other)
  Sender: FDA-Public Use
  Company Number: CA-AMGEN-CANSL2017151179

PATIENT
  Age: 83 Year
  Sex: Female
  Weight: 59 kg

DRUGS (32)
  1. XARELTO [Concomitant]
     Active Substance: RIVAROXABAN
     Dosage: 15 MG, BID
     Dates: start: 20160527
  2. SERAX [Concomitant]
     Active Substance: OXAZEPAM
     Dosage: 15 MG, UNK
     Dates: start: 20170104
  3. CELEXA [Concomitant]
     Active Substance: CITALOPRAM HYDROBROMIDE
     Dosage: 20 MG, QD
     Dates: start: 20170104
  4. BRICANYL [Concomitant]
     Active Substance: TERBUTALINE SULFATE
     Dosage: 0.5 MG, QID
     Route: 045
     Dates: start: 20170321
  5. DIOVOL PLUS [Concomitant]
     Dosage: 15 ML, TID
     Dates: start: 20160428
  6. METRONIDAZOLE. [Concomitant]
     Active Substance: METRONIDAZOLE
     Dosage: 250 MG, UNK
     Dates: start: 20161003
  7. FUSIDINE [Concomitant]
     Dosage: UNK UNK, BID
     Route: 061
     Dates: start: 20170216
  8. FERROUS SULFATE. [Concomitant]
     Active Substance: FERROUS SULFATE
     Dosage: 300 MG, QD
     Dates: start: 20170104
  9. LAX-A-DAY [Concomitant]
     Dosage: 17 G, QD
     Dates: start: 20150812
  10. SINUS RINSE [Concomitant]
     Active Substance: SODIUM BICARBONATE\SODIUM CHLORIDE
     Dosage: 1 DF, BID
     Route: 045
     Dates: start: 20160329
  11. ACIDE FOLIQUE [Concomitant]
     Active Substance: FOLIC ACID
     Dosage: 1 MG, QD
     Dates: start: 20170104
  12. SENOKOT-S [Concomitant]
     Active Substance: DOCUSATE SODIUM\SENNOSIDES
     Dosage: 50/8.6 MG, QD
     Dates: start: 20170112
  13. CLAVULIN [Concomitant]
     Active Substance: AMOXICILLIN\CLAVULANIC ACID
     Dosage: 875/125 MG, Q12H
     Dates: start: 20161121
  14. PMS-HYDROMORPHONE [Concomitant]
     Active Substance: HYDROMORPHONE HYDROCHLORIDE
     Dosage: 1 MG, UNK
     Dates: start: 20161222
  15. PANTOLOC [Concomitant]
     Active Substance: PANTOPRAZOLE SODIUM
     Dosage: 40 MG, BID
     Dates: start: 20170104
  16. SYNTHROID [Concomitant]
     Active Substance: LEVOTHYROXINE SODIUM
     Dosage: 0.025 MG, QD
     Dates: start: 20170427
  17. HYDROMORPH CONTIN [Concomitant]
     Active Substance: HYDROMORPHONE
     Dosage: 3 MG, Q12H
     Dates: start: 20170430
  18. PMS-CIPROFLOXACIN [Concomitant]
     Dosage: 500 MG, UNK
     Dates: start: 20161003
  19. METONIA [Concomitant]
     Active Substance: METOCLOPRAMIDE
     Dosage: 5 MG, BID
     Dates: start: 20170222
  20. SYMBICORT [Concomitant]
     Active Substance: BUDESONIDE\FORMOTEROL FUMARATE DIHYDRATE
     Dosage: 6/200 MUG, BID
     Route: 045
     Dates: start: 20170420
  21. BIOTENE NOS [Concomitant]
     Active Substance: CETYLPYRIDINIUM CHLORIDE OR SODIUM FLUORIDE OR SODIUM MONOFLUOROPHOSPHATE OR GLUCOSE OXIDASE\LACTOFERRIN\LACTOPEROXIDASE BOVINE\LYSOZYME
     Dosage: 60 ML, TID
     Route: 002
     Dates: start: 20170112
  22. EPREX [Concomitant]
     Active Substance: ERYTHROPOIETIN
     Dosage: 30000 MU/.075 ML, QMO
     Route: 058
     Dates: start: 20170427
  23. EMO CORT [Concomitant]
     Dosage: UNK UNK, QD
     Route: 061
     Dates: start: 20160519
  24. MYLAN NITRO SL [Concomitant]
     Dosage: 0.4 MG, UNK
     Route: 002
     Dates: start: 20160914
  25. CIPRO [Concomitant]
     Active Substance: CIPROFLOXACIN HYDROCHLORIDE
     Dosage: 500 MG, Q12H
     Dates: start: 20161003
  26. SOLUCAL D [Concomitant]
     Dosage: 500 MG/400 UI, BID
     Dates: start: 20170104
  27. BEDUZIL [Concomitant]
     Dosage: 1200 MUG, QD
     Dates: start: 20170104
  28. PROLIA [Suspect]
     Active Substance: DENOSUMAB
     Indication: OSTEOPOROSIS POSTMENOPAUSAL
     Dosage: 60 MG/ML, Q6MO
     Route: 058
     Dates: start: 20160329, end: 20170510
  29. RHINARIS [Concomitant]
     Dosage: UNK UNK, QD
     Route: 045
     Dates: start: 20160901
  30. FLAGYL S [Concomitant]
     Active Substance: METRONIDAZOLE BENZOATE
     Dosage: 500 MG, TID
     Dates: start: 20161003
  31. SENOKOT [Concomitant]
     Active Substance: SENNOSIDES
     Dosage: 8.6 MG, AS NECESSARY
     Dates: start: 20170116
  32. LASIX [Concomitant]
     Active Substance: FUROSEMIDE
     Dosage: 20 MG, QD
     Dates: start: 20170427

REACTIONS (22)
  - Glomerular filtration rate decreased [Unknown]
  - Mean cell haemoglobin increased [Unknown]
  - Blood urine present [Unknown]
  - Blood bilirubin increased [Unknown]
  - Blood albumin decreased [Unknown]
  - Acute myocardial infarction [Fatal]
  - White blood cell count increased [Unknown]
  - Pulmonary mass [Unknown]
  - Blood sodium decreased [Unknown]
  - Haematocrit increased [Unknown]
  - Red cell distribution width increased [Unknown]
  - Deep vein thrombosis [Unknown]
  - Blood creatinine increased [Unknown]
  - Blood potassium increased [Unknown]
  - Bilirubin conjugated increased [Unknown]
  - Haemoglobin decreased [Unknown]
  - Thrombophlebitis [Unknown]
  - Amylase increased [Unknown]
  - Lipase increased [Unknown]
  - Mean cell volume increased [Unknown]
  - Red blood cell count decreased [Unknown]
  - Mean platelet volume increased [Unknown]

NARRATIVE: CASE EVENT DATE: 2016
